FAERS Safety Report 13665060 (Version 8)
Quarter: 2018Q3

REPORT INFORMATION
  Report Type: Spontaneous
  Country: DE (occurrence: DE)
  Receive Date: 20170619
  Receipt Date: 20180921
  Transmission Date: 20181010
  Serious: Yes (Hospitalization, Other)
  Sender: FDA-Public Use
  Company Number: DE-NAPPMUNDI-GBR-2017-0045982

PATIENT
  Age: 30 Year
  Sex: Male

DRUGS (3)
  1. PALLADON [Suspect]
     Active Substance: HYDROMORPHONE
     Indication: PAIN
     Dosage: 1 MG, PRN (1 MG, AS NECESSARY)
     Route: 065
     Dates: start: 20170402, end: 20170405
  2. PARACETAMOL [Suspect]
     Active Substance: ACETAMINOPHEN
     Indication: PAIN
     Dosage: 1 G, PRN (1G AS NEEDED)
     Route: 065
     Dates: start: 20170402, end: 201704
  3. PARACETAMOL [Suspect]
     Active Substance: ACETAMINOPHEN
     Indication: PYREXIA
     Dosage: 1 G, AS NECESSARY
     Route: 065

REACTIONS (9)
  - Pyrexia [Unknown]
  - Off label use [Unknown]
  - Ileus paralytic [Recovered/Resolved]
  - Skin reaction [Recovered/Resolved]
  - Blood lactate dehydrogenase decreased [Recovered/Resolved]
  - Neurotoxicity [Recovered/Resolved]
  - Abdominal pain lower [Unknown]
  - Cytokine release syndrome [Unknown]
  - Burkitt^s lymphoma recurrent [Not Recovered/Not Resolved]

NARRATIVE: CASE EVENT DATE: 2017
